FAERS Safety Report 21933388 (Version 3)
Quarter: 2023Q2

REPORT INFORMATION
  Report Type: Spontaneous
  Country: DE (occurrence: DE)
  Receive Date: 20230131
  Receipt Date: 20230505
  Transmission Date: 20230721
  Serious: Yes (Other)
  Sender: FDA-Public Use
  Company Number: DE-BRISTOL-MYERS SQUIBB COMPANY-2023-012486

PATIENT
  Age: 57 Year
  Sex: Male

DRUGS (6)
  1. YERVOY [Suspect]
     Active Substance: IPILIMUMAB
     Indication: Pleural mesothelioma
     Dosage: DOSE : UNAVAILABLE;     FREQ : UNAVAILABLE
     Dates: start: 202205
  2. OPDIVO [Suspect]
     Active Substance: NIVOLUMAB
     Indication: Pleural mesothelioma
     Dosage: LAST DOSE: 24-NOV-2022
     Dates: start: 202205, end: 20221124
  3. ROMIPLOSTIM [Concomitant]
     Active Substance: ROMIPLOSTIM
     Indication: Product used for unknown indication
     Dosage: 2 MICROGRAM (S)/KILOGRAM (UG/KG)
     Dates: start: 20221227
  4. ROMIPLOSTIM [Concomitant]
     Active Substance: ROMIPLOSTIM
     Dosage: 4 MICROGRAM (S)/KILOGRAM (UG/KG)
     Dates: start: 20230114
  5. ROMIPLOSTIM [Concomitant]
     Active Substance: ROMIPLOSTIM
     Dosage: 1 MICROGRAM (S)/KILOGRAM (UG/KG)
     Dates: start: 20221227
  6. HUMAN IMMUNOGLOBULIN G [Concomitant]
     Active Substance: HUMAN IMMUNOGLOBULIN G
     Indication: Product used for unknown indication
     Dosage: 1 GRAM PER KILOGRAM
     Dates: start: 20221220

REACTIONS (9)
  - Malignant neoplasm progression [Unknown]
  - Immune thrombocytopenia [Unknown]
  - Haemolytic anaemia [Unknown]
  - Thrombotic thrombocytopenic purpura [Unknown]
  - Haemolytic uraemic syndrome [Unknown]
  - Aplastic anaemia [Unknown]
  - Lymphopenia [Unknown]
  - Acquired haemophilia [Unknown]
  - Haemophagocytic lymphohistiocytosis [Unknown]

NARRATIVE: CASE EVENT DATE: 20220101
